FAERS Safety Report 10150367 (Version 1)
Quarter: 2014Q2

REPORT INFORMATION
  Report Type: Report from Study
  Country: BR (occurrence: BR)
  Receive Date: 20140502
  Receipt Date: 20140502
  Transmission Date: 20141212
  Serious: Yes (Other)
  Sender: FDA-Public Use
  Company Number: PHHY2014BR050969

PATIENT
  Sex: Female
  Weight: 64 kg

DRUGS (4)
  1. GALVUS MET [Suspect]
     Indication: DIABETES MELLITUS
     Dosage: 3 DF (METF 850 MG / VILD 50 MG), DAILY
  2. DIOVAN [Suspect]
     Indication: HYPERTENSION
     Dosage: 1 DF (VALS 320 MG), DAILY
  3. OSCAL D [Concomitant]
     Indication: BLOOD CALCIUM ABNORMAL
     Dosage: 1 DF, DAILY
  4. CINNARIZINE [Concomitant]
     Indication: INNER EAR DISORDER
     Dosage: 1 DF, DAILY

REACTIONS (2)
  - Cataract [Recovered/Resolved]
  - Osteopenia [Recovered/Resolved]
